FAERS Safety Report 16175969 (Version 1)
Quarter: 2019Q2

REPORT INFORMATION
  Report Type: Spontaneous
  Country: FR (occurrence: FR)
  Receive Date: 20190409
  Receipt Date: 20190409
  Transmission Date: 20190711
  Serious: Yes (Hospitalization)
  Sender: FDA-Public Use
  Company Number: FR-MYLANLABS-2019M1032794

PATIENT
  Age: 62 Year
  Sex: Male

DRUGS (2)
  1. PREVISCAN                          /00789001/ [Interacting]
     Active Substance: FLUINDIONE
     Indication: THROMBOSIS PROPHYLAXIS
     Dosage: 0-0-1 + 1/4
     Route: 048
     Dates: start: 201505, end: 20180218
  2. PRAVASTATIN. [Suspect]
     Active Substance: PRAVASTATIN
     Indication: DYSLIPIDAEMIA
     Dosage: 20 MILLIGRAM, QD
     Route: 048
     Dates: start: 2014

REACTIONS (4)
  - International normalised ratio increased [Recovered/Resolved]
  - Drug interaction [Unknown]
  - Haematuria [Recovered/Resolved]
  - Blood loss anaemia [Recovered/Resolved]

NARRATIVE: CASE EVENT DATE: 20180217
